FAERS Safety Report 11014771 (Version 2)
Quarter: 2015Q2

REPORT INFORMATION
  Report Type: Spontaneous
  Country: US (occurrence: US)
  Receive Date: 20150412
  Receipt Date: 20150525
  Transmission Date: 20150821
  Serious: No
  Sender: FDA-Public Use
  Company Number: US-JNJFOC-20131212483

PATIENT

DRUGS (1)
  1. ULTRAM ER [Suspect]
     Active Substance: TRAMADOL HYDROCHLORIDE
     Indication: DRUG DEPENDENCE
     Route: 048

REACTIONS (13)
  - Adverse event [Unknown]
  - Muscle tightness [Unknown]
  - Sluggishness [Unknown]
  - Insomnia [Unknown]
  - Rhinorrhoea [Unknown]
  - Drug dependence [Unknown]
  - Miosis [Unknown]
  - Depression [Unknown]
  - Lacrimation increased [Unknown]
  - Sneezing [Unknown]
  - Irritability [Unknown]
  - Off label use [Unknown]
  - Feeling of body temperature change [Unknown]
